FAERS Safety Report 4787497-2 (Version None)
Quarter: 2005Q4

REPORT INFORMATION
  Report Type: 
  Country: None (occurrence: None)
  Receive Date: 20051004
  Receipt Date: 20050922
  Transmission Date: 20060501
  Serious: Yes (Hospitalization)
  Sender: FDA-Public Use
  Company Number: FR-SANOFI-SYNTHELABO-A02200502459

PATIENT
  Age: 81 Year
  Sex: Male

DRUGS (6)
  1. PLAVIX [Suspect]
     Indication: MYOCARDIAL INFARCTION
     Route: 048
     Dates: start: 20050813, end: 20050814
  2. VASTEN [Concomitant]
     Route: 048
     Dates: start: 20040101
  3. NISIS [Concomitant]
     Indication: HYPERTENSION
     Route: 048
     Dates: start: 20040101
  4. AMIODARONE MERCK [Concomitant]
     Route: 048
     Dates: start: 20040101
  5. FORADIL [Concomitant]
     Indication: BRONCHITIS CHRONIC
     Route: 055
     Dates: start: 20040101
  6. MIFLAZONE [Concomitant]
     Indication: BRONCHITIS CHRONIC
     Route: 055
     Dates: start: 20040101

REACTIONS (14)
  - AGITATION [None]
  - BLOOD CREATININE INCREASED [None]
  - ELECTROCARDIOGRAM ST SEGMENT ELEVATION [None]
  - HAEMATOCRIT DECREASED [None]
  - HAEMOGLOBIN DECREASED [None]
  - HYPERHIDROSIS [None]
  - HYPOTENSION [None]
  - MALAISE [None]
  - MENTAL IMPAIRMENT [None]
  - OEDEMA PERIPHERAL [None]
  - RED BLOOD CELL COUNT DECREASED [None]
  - SOMNOLENCE [None]
  - URINARY BLADDER POLYP [None]
  - URTICARIA PAPULAR [None]
